FAERS Safety Report 9196241 (Version 2)
Quarter: 2013Q2

REPORT INFORMATION
  Report Type: Spontaneous
  Country: DE (occurrence: DE)
  Receive Date: 20130328
  Receipt Date: 20130415
  Transmission Date: 20140414
  Serious: Yes (Other)
  Sender: FDA-Public Use
  Company Number: DE-JNJFOC-20130310514

PATIENT
  Age: 44 Year
  Sex: Female
  Weight: 60 kg

DRUGS (4)
  1. RISPERDAL [Suspect]
     Indication: PRODUCT USED FOR UNKNOWN INDICATION
     Dosage: 100 TABLETS
     Route: 048
     Dates: start: 20130316, end: 20130316
  2. SEROQUEL [Suspect]
     Indication: PRODUCT USED FOR UNKNOWN INDICATION
     Dosage: 100 TABLETS
     Route: 048
     Dates: start: 20130316, end: 20130316
  3. AKINETON [Suspect]
     Indication: PRODUCT USED FOR UNKNOWN INDICATION
     Route: 048
     Dates: start: 20130316, end: 20130316
  4. LYRICA [Suspect]
     Indication: PRODUCT USED FOR UNKNOWN INDICATION
     Dosage: 50 TABLETS
     Route: 048
     Dates: start: 20130316, end: 20130316

REACTIONS (5)
  - Suicide attempt [Unknown]
  - Convulsion [Unknown]
  - Tachycardia [Unknown]
  - Systolic hypertension [Unknown]
  - Intentional overdose [Unknown]
